FAERS Safety Report 14874981 (Version 1)
Quarter: 2018Q2

REPORT INFORMATION
  Report Type: Spontaneous
  Country: US (occurrence: US)
  Receive Date: 20180424
  Receipt Date: 20180424
  Transmission Date: 20180711
  Serious: No
  Sender: FDA-Public Use
  Company Number: None

PATIENT
  Age: 65 Year
  Sex: Female

DRUGS (1)
  1. REMICADE [Suspect]
     Active Substance: INFLIXIMAB
     Indication: COLITIS ULCERATIVE
     Dosage: 400 MG WEEK 6 THEN Q8 WEEKS IV
     Route: 042
     Dates: start: 20180307

REACTIONS (1)
  - Rash [None]

NARRATIVE: CASE EVENT DATE: 20180419
